FAERS Safety Report 10248523 (Version 2)
Quarter: 2014Q2

REPORT INFORMATION
  Report Type: Report from Study
  Country: FR (occurrence: FR)
  Receive Date: 20140620
  Receipt Date: 20140620
  Transmission Date: 20141212
  Serious: Yes (Hospitalization)
  Sender: FDA-Public Use
  Company Number: FR-ALEXION PHARMACEUTICALS INC.-A201400292

PATIENT
  Sex: 0

DRUGS (2)
  1. ECULIZUMAB [Suspect]
     Indication: HAEMOLYTIC URAEMIC SYNDROME
     Dosage: UNK
     Dates: start: 20110423
  2. ECULIZUMAB [Suspect]
     Dosage: 1200 MG, Q2W
     Dates: end: 20121117

REACTIONS (1)
  - Renal impairment [Recovered/Resolved]
